FAERS Safety Report 6149806-1 (Version None)
Quarter: 2009Q2

REPORT INFORMATION
  Report Type: 
  Country: None (occurrence: None)
  Receive Date: 20090407
  Receipt Date: 20090330
  Transmission Date: 20091009
  Serious: Yes (Death, Other)
  Sender: FDA-Public Use
  Company Number: 2009000909

PATIENT
  Age: 64 Year
  Sex: Male

DRUGS (1)
  1. TARCEVA [Suspect]
     Indication: HEPATIC NEOPLASM MALIGNANT
     Dosage: 100 MG, QD ORAL
     Route: 048
     Dates: start: 20051201, end: 20070601

REACTIONS (6)
  - ALCOHOL USE [None]
  - DISEASE PROGRESSION [None]
  - HAEMORRHAGE [None]
  - HEPATIC FAILURE [None]
  - HEPATORENAL SYNDROME [None]
  - SKIN TOXICITY [None]
